FAERS Safety Report 8259897-X (Version None)
Quarter: 2012Q2

REPORT INFORMATION
  Report Type: 
  Country: None (occurrence: None)
  Receive Date: 20120404
  Receipt Date: 20120327
  Transmission Date: 20120825
  Serious: Yes (Other)
  Sender: FDA-Public Use
  Company Number: DE-GLAXOSMITHKLINE-B0792991A

PATIENT
  Age: 52 Year
  Sex: Male

DRUGS (2)
  1. SALMETEROL FLUTICASONE [Suspect]
     Indication: CHRONIC OBSTRUCTIVE PULMONARY DISEASE
     Dosage: 250UG TWICE PER DAY
     Route: 055
  2. RITONAVIR [Suspect]
     Indication: HIV INFECTION

REACTIONS (5)
  - OSTEOPOROSIS [None]
  - HYPOGONADISM [None]
  - FRACTURE [None]
  - HYPERCORTICOIDISM [None]
  - DRUG INTERACTION [None]
